FAERS Safety Report 17010529 (Version 3)
Quarter: 2020Q4

REPORT INFORMATION
  Report Type: Spontaneous
  Country: US (occurrence: US)
  Receive Date: 20191108
  Receipt Date: 20201013
  Transmission Date: 20210113
  Serious: Yes (Hospitalization, Other)
  Sender: FDA-Public Use
  Company Number: US-AMNEAL PHARMACEUTICALS-2019-AMRX-02542

PATIENT
  Age: 42 Year
  Sex: Female
  Weight: 113 kg

DRUGS (13)
  1. ACTIVELLA [Suspect]
     Active Substance: ESTRADIOL\NORETHINDRONE ACETATE
     Indication: UTERINE LEIOMYOMA
     Dosage: 1 MILLIGRAM, 1X/DAY
     Route: 048
     Dates: start: 20190501, end: 20190923
  2. ACTIVELLA [Suspect]
     Active Substance: ESTRADIOL\NORETHINDRONE ACETATE
     Dosage: 1 MILLIGRAM, 1X/DAY
     Route: 048
     Dates: start: 20191008
  3. NOVOLIN N [Concomitant]
     Active Substance: INSULIN HUMAN
     Indication: TYPE 2 DIABETES MELLITUS
     Dosage: 0.2 MILLILITER, 2X/DAY
     Route: 058
     Dates: start: 20181025
  4. LOSARTAN. [Concomitant]
     Active Substance: LOSARTAN
     Indication: RENAL IMPAIRMENT
     Dosage: 50 MILLIGRAM, 1X/DAY
     Route: 048
     Dates: start: 20090115
  5. LIPITOR [Concomitant]
     Active Substance: ATORVASTATIN CALCIUM
     Indication: CEREBROVASCULAR ACCIDENT PROPHYLAXIS
  6. ZYRTEC [Concomitant]
     Active Substance: CETIRIZINE HYDROCHLORIDE
     Indication: SEASONAL ALLERGY
     Dosage: 10 MILLIGRAM, 1X/DAY
     Route: 048
     Dates: start: 20171218
  7. ELAGOLIX [Suspect]
     Active Substance: ELAGOLIX
     Dosage: 300 DOSAGE FORM, 2X/DAY
     Route: 048
     Dates: start: 20191008
  8. LIPITOR [Concomitant]
     Active Substance: ATORVASTATIN CALCIUM
     Indication: ISCHAEMIC HEART DISEASE PROPHYLAXIS
     Dosage: 10 MILLIGRAM, 1X/DAY
     Route: 048
     Dates: start: 2009
  9. VENLAFAXINE [Concomitant]
     Active Substance: VENLAFAXINE HYDROCHLORIDE
     Indication: PAIN IN EXTREMITY
     Dosage: 150 MILLIGRAM, 1X/DAY
     Route: 048
     Dates: start: 201601
  10. GABAPENTIN. [Concomitant]
     Active Substance: GABAPENTIN
     Indication: PAIN IN EXTREMITY
     Dosage: 900 MILLIGRAM, 3X/DAY
     Route: 048
     Dates: start: 201501
  11. FERROUS SULFATE. [Concomitant]
     Active Substance: FERROUS SULFATE
     Indication: ANAEMIA
     Dosage: 325 MILLIGRAM, 3X/DAY
     Route: 048
     Dates: start: 20180309
  12. VITAMIN D [ERGOCALCIFEROL] [Concomitant]
     Active Substance: ERGOCALCIFEROL
     Indication: SUPPLEMENTATION THERAPY
     Dosage: 1000 IU/KG, 1X/DAY
     Route: 048
     Dates: start: 20180508
  13. ELAGOLIX [Suspect]
     Active Substance: ELAGOLIX
     Indication: UTERINE LEIOMYOMA
     Dosage: 300 MILLIGRAM, 2X/DAY
     Route: 048
     Dates: start: 20190501, end: 20190923

REACTIONS (1)
  - Cellulitis [Recovered/Resolved]

NARRATIVE: CASE EVENT DATE: 20190917
